FAERS Safety Report 4360547-3 (Version None)
Quarter: 2004Q2

REPORT INFORMATION
  Report Type: 
  Country: None (occurrence: None)
  Receive Date: 20040519
  Receipt Date: 20021226
  Transmission Date: 20050107
  Serious: Yes (Hospitalization)
  Sender: FDA-Public Use
  Company Number: JP-ROCHE-328213

PATIENT
  Age: 8 Year
  Sex: Male
  Weight: 20 kg

DRUGS (6)
  1. TAMIFLU [Suspect]
     Dosage: FORM REPORTED AS DRY SYRUP
     Route: 048
     Dates: start: 20021221, end: 20021221
  2. CLARITH [Concomitant]
     Route: 048
     Dates: start: 20021221, end: 20021221
  3. NAUZELIN [Concomitant]
     Indication: NAUSEA
     Route: 048
     Dates: start: 20021221, end: 20021221
  4. ASVERIN [Concomitant]
     Indication: COUGH
     Route: 048
     Dates: start: 20021221, end: 20021221
  5. PERIACTIN [Concomitant]
     Indication: NASAL CONGESTION
     Route: 048
     Dates: start: 20021221, end: 20021221
  6. CARBOCYSTEINE [Concomitant]
     Route: 048
     Dates: start: 20021221, end: 20021221

REACTIONS (2)
  - ABNORMAL BEHAVIOUR [None]
  - MOANING [None]
